FAERS Safety Report 18190820 (Version 4)
Quarter: 2020Q4

REPORT INFORMATION
  Report Type: Report from Study
  Country: US (occurrence: US)
  Receive Date: 20200825
  Receipt Date: 20201117
  Transmission Date: 20210113
  Serious: Yes (Other)
  Sender: FDA-Public Use
  Company Number: US-CLOVIS ONCOLOGY-CLO-2020-001554

PATIENT
  Sex: Male

DRUGS (2)
  1. RUBRACA [Suspect]
     Active Substance: RUCAPARIB CAMSYLATE
     Dosage: 300 MG, BID
     Route: 048
     Dates: start: 20200806, end: 20201111
  2. RUBRACA [Suspect]
     Active Substance: RUCAPARIB CAMSYLATE
     Indication: PROSTATE CANCER
     Dosage: 600 MG, BID
     Route: 048
     Dates: start: 20200806, end: 202008

REACTIONS (6)
  - Constipation [Unknown]
  - Malignant neoplasm progression [Unknown]
  - Urinary tract infection [Unknown]
  - Implant site pain [Unknown]
  - Abdominal discomfort [Unknown]
  - Spinal compression fracture [Unknown]

NARRATIVE: CASE EVENT DATE: 2020
